FAERS Safety Report 14381036 (Version 2)
Quarter: 2018Q1

REPORT INFORMATION
  Report Type: Spontaneous
  Country: US (occurrence: US)
  Receive Date: 20180112
  Receipt Date: 20180305
  Transmission Date: 20180509
  Serious: Yes (Other)
  Sender: FDA-Public Use
  Company Number: US-009507513-1801USA004378

PATIENT
  Age: 71 Year
  Sex: Female

DRUGS (18)
  1. SINEMET [Suspect]
     Active Substance: CARBIDOPA\LEVODOPA
     Dosage: UNK, REDOSED INTRAOPERATIVELY (THROUGH AN OROGASTRIC TUBE)
     Route: 048
  2. SINEMET [Suspect]
     Active Substance: CARBIDOPA\LEVODOPA
     Dosage: UNK, ADJUSTED DOSE
     Route: 048
  3. ENTACAPONE. [Suspect]
     Active Substance: ENTACAPONE
     Indication: PARKINSON^S DISEASE
     Dosage: UNK
  4. DEXAMETHASONE. [Suspect]
     Active Substance: DEXAMETHASONE
     Indication: LARYNGEAL OBSTRUCTION
  5. EPINEPHRINE. [Suspect]
     Active Substance: EPINEPHRINE
     Indication: LARYNGEAL OBSTRUCTION
  6. LIDOCAINE. [Concomitant]
     Active Substance: LIDOCAINE
     Indication: INDUCTION OF ANAESTHESIA
     Dosage: 30 MG, UNK
  7. EPINEPHRINE. [Suspect]
     Active Substance: EPINEPHRINE
     Indication: UPPER AIRWAY OBSTRUCTION
     Dosage: UNK
     Route: 055
  8. ZEMURON [Concomitant]
     Active Substance: ROCURONIUM BROMIDE
     Indication: MUSCLE RELAXANT THERAPY
     Dosage: 50 MG, UNK
  9. FENTANYL. [Concomitant]
     Active Substance: FENTANYL
     Indication: INDUCTION OF ANAESTHESIA
     Dosage: 50 MICROGRAM, UNK
  10. SINEMET [Suspect]
     Active Substance: CARBIDOPA\LEVODOPA
     Indication: PARKINSON^S DISEASE
     Dosage: UNK
     Route: 048
  11. PROPOFOL. [Concomitant]
     Active Substance: PROPOFOL
     Indication: INDUCTION OF ANAESTHESIA
     Dosage: 80 MG, UNK
  12. AMANTADINE. [Suspect]
     Active Substance: AMANTADINE HYDROCHLORIDE
     Indication: PARKINSON^S DISEASE
     Dosage: UNK
  13. DEXAMETHASONE. [Suspect]
     Active Substance: DEXAMETHASONE
     Indication: UPPER AIRWAY OBSTRUCTION
     Dosage: 10 MG, UNK
     Route: 042
  14. EPINEPHRINE. [Suspect]
     Active Substance: EPINEPHRINE
     Indication: SLEEP APNOEA SYNDROME
  15. GLYCOPYRROLATE. [Concomitant]
     Active Substance: GLYCOPYRROLATE
     Indication: NEUROMUSCULAR BLOCKADE
     Dosage: 0.4 MG, UNK
  16. DEXAMETHASONE. [Suspect]
     Active Substance: DEXAMETHASONE
     Indication: SLEEP APNOEA SYNDROME
  17. MIDAZOLAM [Concomitant]
     Active Substance: MIDAZOLAM HYDROCHLORIDE
     Indication: INDUCTION OF ANAESTHESIA
     Dosage: 1 MG, UNK
  18. NEOSTIGMINE METHYLSULFATE. [Concomitant]
     Active Substance: NEOSTIGMINE METHYLSULFATE
     Indication: NEUROMUSCULAR BLOCKADE
     Dosage: 2.5 MG, UNK

REACTIONS (1)
  - Drug ineffective [Recovering/Resolving]
